FAERS Safety Report 8112980-1 (Version None)
Quarter: 2012Q1

REPORT INFORMATION
  Report Type: 
  Country: None (occurrence: None)
  Receive Date: 20120203
  Receipt Date: 20120123
  Transmission Date: 20120608
  Serious: Yes (Hospitalization, Other)
  Sender: FDA-Public Use
  Company Number: US-ELI_LILLY_AND_COMPANY-US201111003600

PATIENT
  Age: 60 Year
  Sex: Female

DRUGS (2)
  1. VITAMIN D [Concomitant]
  2. FORTEO [Suspect]
     Indication: OSTEOPENIA
     Dosage: UNK, UNKNOWN
     Route: 065
     Dates: start: 20110101

REACTIONS (3)
  - OFF LABEL USE [None]
  - HYPERCALCAEMIA [None]
  - RENAL FAILURE ACUTE [None]
